FAERS Safety Report 15353931 (Version 2)
Quarter: 2018Q3

REPORT INFORMATION
  Report Type: Report from Study
  Country: US (occurrence: US)
  Receive Date: 20180905
  Receipt Date: 20180925
  Transmission Date: 20181010
  Serious: Yes (Other)
  Sender: FDA-Public Use
  Company Number: US-CLOVIS ONCOLOGY-CLO-2018-000822

PATIENT
  Sex: Female

DRUGS (1)
  1. RUBRACA [Suspect]
     Active Substance: RUCAPARIB CAMSYLATE
     Indication: OVARIAN CANCER
     Dosage: 600 MG, BID
     Route: 048
     Dates: start: 20180628, end: 2018

REACTIONS (11)
  - Red blood cell count decreased [Recovering/Resolving]
  - Abdominal pain upper [Recovering/Resolving]
  - Fatigue [Unknown]
  - Drug ineffective [Unknown]
  - Fluid retention [Unknown]
  - Carbohydrate antigen 125 increased [Unknown]
  - Early satiety [Unknown]
  - Mean cell volume increased [Unknown]
  - Nausea [Unknown]
  - Mean cell haemoglobin increased [Unknown]
  - Asthenia [Unknown]

NARRATIVE: CASE EVENT DATE: 2018
